FAERS Safety Report 4368238-X (Version None)
Quarter: 2004Q2

REPORT INFORMATION
  Report Type: 
  Country: None (occurrence: None)
  Receive Date: 20040602
  Receipt Date: 20040601
  Transmission Date: 20050107
  Serious: Yes (Life-Threatening)
  Sender: FDA-Public Use
  Company Number: US-BRISTOL-MYERS SQUIBB COMPANY-12600771

PATIENT
  Sex: Male

DRUGS (3)
  1. TAXOL [Suspect]
     Indication: PROSTATE CANCER
     Dates: end: 20040523
  2. ETOPOSIDE [Suspect]
     Indication: PROSTATE CANCER
     Dates: end: 20040523
  3. EMCYT [Suspect]
     Indication: PROSTATE CANCER
     Dates: end: 20040523

REACTIONS (1)
  - BLOOD CREATININE INCREASED [None]
